FAERS Safety Report 10674155 (Version 1)
Quarter: 2014Q4

REPORT INFORMATION
  Report Type: Spontaneous
  Country: US (occurrence: None)
  Receive Date: 20141209
  Receipt Date: 20141209
  Transmission Date: 20150529
  Serious: Yes (Hospitalization)
  Sender: FDA-Public Use
  Company Number: 406384

PATIENT
  Age: 59 Year
  Sex: Male
  Weight: 61.2 kg

DRUGS (10)
  1. VITAMIN D [Concomitant]
     Active Substance: CHOLECALCIFEROL
  2. NOVOLOG [Suspect]
     Active Substance: INSULIN ASPART
     Indication: TYPE 2 DIABETES MELLITUS
     Dosage: 7 UNITS, TID BEFORE MEALS, SUBCUTANEOUS
     Route: 058
     Dates: start: 201310
  3. OXYBUTYNIN [Concomitant]
     Active Substance: OXYBUTYNIN
  4. VITAMIN A [Concomitant]
     Active Substance: VITAMIN A
  5. VITAMIN E [Concomitant]
     Active Substance: .ALPHA.-TOCOPHEROL
  6. CELLCEPT [Concomitant]
     Active Substance: MYCOPHENOLATE MOFETIL\MYCOPHENOLATE MOFETIL HYDROCHLORIDE
  7. PREDNISONE. [Concomitant]
     Active Substance: PREDNISONE
  8. VITAMIN C [Concomitant]
     Active Substance: ASCORBIC ACID
  9. DIOVAN [Concomitant]
     Active Substance: VALSARTAN
  10. PROGRAF [Concomitant]
     Active Substance: TACROLIMUS\TACROLIMUS ANHYDROUS

REACTIONS (1)
  - Blood glucose increased [None]
